FAERS Safety Report 9242872 (Version 3)
Quarter: 2013Q3

REPORT INFORMATION
  Report Type: Spontaneous
  Country: US (occurrence: US)
  Receive Date: 20130419
  Receipt Date: 20130717
  Transmission Date: 20140515
  Serious: Yes (Other)
  Sender: FDA-Public Use
  Company Number: US-009507513-1304USA008025

PATIENT
  Age: 58 Year
  Sex: Male
  Weight: 84.81 kg

DRUGS (4)
  1. PEGINTRON [Suspect]
     Indication: CHRONIC HEPATITIS C
     Dosage: 0.5 UNITS UNKNOWN
     Dates: start: 20130412
  2. PEGINTRON [Suspect]
     Dosage: 0.3 UNITS UNKNOWN
  3. REBETOL [Suspect]
     Indication: HEPATITIS C
     Dosage: UNK
     Dates: start: 20130412
  4. TELAPREVIR [Suspect]
     Indication: HEPATITIS C
     Dosage: UNK
     Dates: start: 20130412

REACTIONS (18)
  - Syncope [Unknown]
  - Headache [Unknown]
  - Ear pain [Unknown]
  - Headache [Recovered/Resolved]
  - Ear pain [Unknown]
  - Ear pain [Unknown]
  - Eye pain [Unknown]
  - Insomnia [Unknown]
  - Fatigue [Unknown]
  - Red blood cell count decreased [Unknown]
  - White blood cell count decreased [Unknown]
  - Migraine [Unknown]
  - Skin disorder [Unknown]
  - Skin disorder [Unknown]
  - Migraine [Recovered/Resolved]
  - Anal pruritus [Recovered/Resolved]
  - Dermatitis contact [Unknown]
  - Headache [Unknown]
